FAERS Safety Report 4319288-0 (Version None)
Quarter: 2004Q1

REPORT INFORMATION
  Report Type: 
  Country: None (occurrence: None)
  Receive Date: 20040318
  Receipt Date: 20040318
  Transmission Date: 20041129
  Serious: Yes (Life-Threatening, Hospitalization)
  Sender: FDA-Public Use
  Company Number: None

PATIENT
  Sex: Male

DRUGS (1)
  1. CIPROFLOXACIN [Suspect]
     Dates: start: 20040301, end: 20040304

REACTIONS (2)
  - SELF-MEDICATION [None]
  - STEVENS-JOHNSON SYNDROME [None]
